FAERS Safety Report 5050053-5 (Version None)
Quarter: 2006Q2

REPORT INFORMATION
  Report Type: 
  Country: None (occurrence: None)
  Receive Date: 20060601
  Receipt Date: 20060317
  Transmission Date: 20061013
  Serious: No
  Sender: FDA-Public Use
  Company Number: US200602005517

PATIENT
  Age: 33 Year
  Sex: Female

DRUGS (6)
  1. CYMBALTA [Suspect]
     Indication: RADICULOPATHY
     Dosage: SEE IMAGE
     Route: 048
     Dates: start: 20051118, end: 20051125
  2. CYMBALTA [Suspect]
     Indication: RADICULOPATHY
     Dosage: SEE IMAGE
     Route: 048
     Dates: start: 20051125, end: 20060214
  3. CYMBALTA [Suspect]
     Indication: RADICULOPATHY
     Dosage: SEE IMAGE
     Route: 048
     Dates: start: 20060214, end: 20060228
  4. HUMULIN N [Concomitant]
  5. HUMALOG /GFR/ (INSULIN LISPRO) [Concomitant]
  6. NORFLEX [Concomitant]

REACTIONS (1)
  - DRUG EXPOSURE DURING PREGNANCY [None]
